FAERS Safety Report 11056324 (Version 1)
Quarter: 2015Q2

REPORT INFORMATION
  Report Type: Spontaneous
  Country: TR (occurrence: TR)
  Receive Date: 20150422
  Receipt Date: 20150422
  Transmission Date: 20150821
  Serious: Yes (Other)
  Sender: FDA-Public Use
  Company Number: TR-MYLANLABS-2015M1013306

PATIENT

DRUGS (3)
  1. RISPERIDONE. [Suspect]
     Active Substance: RISPERIDONE
     Dosage: 4 MG/DAY, ERRONEOUSLY
     Route: 065
  2. RISPERIDONE. [Suspect]
     Active Substance: RISPERIDONE
     Indication: AGGRESSION
     Dosage: INITIAL DOSE NOT STATED, LATER INCREASED TO 2 MG/DAY
     Route: 065
  3. METHYLPHENIDATE [Concomitant]
     Active Substance: METHYLPHENIDATE
     Dosage: INITIAL DOSE NOT STATED, LATER INCREASED TO 36 MG/DAY
     Route: 065

REACTIONS (2)
  - Incorrect dose administered [Unknown]
  - Extrapyramidal disorder [Recovered/Resolved]
